FAERS Safety Report 21278390 (Version 1)
Quarter: 2022Q3

REPORT INFORMATION
  Report Type: Report from Study
  Country: CA (occurrence: CA)
  Receive Date: 20220831
  Receipt Date: 20220831
  Transmission Date: 20221026
  Serious: Yes (Death, Other)
  Sender: FDA-Public Use
  Company Number: CA-HLS-202200207

PATIENT
  Age: 70 Year
  Sex: Female

DRUGS (2)
  1. CLOZARIL [Suspect]
     Active Substance: CLOZAPINE
     Indication: Product used for unknown indication
     Dosage: PATIENT WAS TAKING CLOZARIL FOR 27 YEARS
     Route: 048
     Dates: start: 19950209
  2. TEMAZEPAM [Concomitant]
     Active Substance: TEMAZEPAM
     Indication: Product used for unknown indication
     Route: 065

REACTIONS (4)
  - Chronic respiratory disease [Unknown]
  - Potentiating drug interaction [Unknown]
  - Hepatic enzyme increased [Unknown]
  - Death [Fatal]

NARRATIVE: CASE EVENT DATE: 20220807
